FAERS Safety Report 16182149 (Version 4)
Quarter: 2020Q4

REPORT INFORMATION
  Report Type: Spontaneous
  Country: US (occurrence: US)
  Receive Date: 20190410
  Receipt Date: 20201013
  Transmission Date: 20210113
  Serious: Yes (Other)
  Sender: FDA-Public Use
  Company Number: US-PFIZER INC-2019155701

PATIENT
  Age: 12 Year
  Sex: Male
  Weight: 64 kg

DRUGS (2)
  1. BENEFIX [Suspect]
     Active Substance: COAGULATION FACTOR IX RECOMBINANT HUMAN\ISOPROPYL ALCOHOL
     Dosage: 100 UNITS/KG AS NEEDED, INFUSE 6400 UNITS (+5%)
  2. BENEFIX [Suspect]
     Active Substance: COAGULATION FACTOR IX RECOMBINANT HUMAN\ISOPROPYL ALCOHOL
     Indication: HAEMORRHAGE
     Dosage: 100 UNITS/KG DAILY X 1 ON DEMAND, INFUSE 5900 UNITS (+6%)

REACTIONS (1)
  - Mouth haemorrhage [Not Recovered/Not Resolved]
